FAERS Safety Report 7294462-2 (Version None)
Quarter: 2011Q1

REPORT INFORMATION
  Report Type: 
  Country: None (occurrence: None)
  Receive Date: 20110216
  Receipt Date: 20110207
  Transmission Date: 20110831
  Serious: Yes (Hospitalization)
  Sender: FDA-Public Use
  Company Number: US-BIOGENIDEC-2010BI044887

PATIENT
  Age: 0 Day
  Sex: Male
  Weight: 1 kg

DRUGS (1)
  1. TYSABRI [Suspect]
     Indication: DRUG EXPOSURE DURING PREGNANCY
     Route: 064
     Dates: start: 20090209, end: 20100118

REACTIONS (3)
  - SMALL FOR DATES BABY [None]
  - ACUTE RESPIRATORY DISTRESS SYNDROME [None]
  - GASTROOESOPHAGEAL REFLUX DISEASE [None]
